FAERS Safety Report 7677797-0 (Version None)
Quarter: 2011Q3

REPORT INFORMATION
  Report Type: 
  Country: None (occurrence: None)
  Receive Date: 20110811
  Receipt Date: 20110801
  Transmission Date: 20111222
  Serious: Yes (Hospitalization)
  Sender: FDA-Public Use
  Company Number: TR-SANOFI-AVENTIS-2011SA049662

PATIENT
  Age: 44 Year
  Sex: Male

DRUGS (4)
  1. HEPARIN SODIUM [Concomitant]
     Dosage: DOSE:5000 UNIT(S)
     Route: 042
  2. CLOPIDOGREL BISULFATE [Suspect]
     Dosage: LOADING DOSE
     Route: 065
  3. CLOPIDOGREL BISULFATE [Suspect]
     Route: 065
  4. ASPIRIN [Concomitant]
     Route: 065

REACTIONS (7)
  - THROMBOSIS [None]
  - PRURITUS GENERALISED [None]
  - CHEST PAIN [None]
  - HYPERSENSITIVITY [None]
  - ARTERIAL OCCLUSIVE DISEASE [None]
  - URTICARIA [None]
  - SUBCUTANEOUS NODULE [None]
